FAERS Safety Report 9201002 (Version 1)
Quarter: 2013Q2

REPORT INFORMATION
  Report Type: Spontaneous
  Country: IT (occurrence: IT)
  Receive Date: 20130401
  Receipt Date: 20130401
  Transmission Date: 20140414
  Serious: Yes (Other)
  Sender: FDA-Public Use
  Company Number: IT-JNJFOC-20130317434

PATIENT
  Age: 63 Year
  Sex: Female

DRUGS (3)
  1. DOXORUBICIN HYDROCHLORIDE (CAELYX) [Suspect]
     Indication: OVARIAN CANCER
     Route: 042
     Dates: start: 20130319, end: 20130319
  2. CORTICOSTEROIDS [Concomitant]
     Indication: PREMEDICATION
     Route: 065
  3. ANTIHISTAMINES [Concomitant]
     Indication: PREMEDICATION
     Route: 065

REACTIONS (4)
  - Laryngospasm [Recovered/Resolved]
  - Cough [Recovered/Resolved]
  - Pruritus [Recovered/Resolved]
  - Urticaria [Recovered/Resolved]
